FAERS Safety Report 6173274-7 (Version None)
Quarter: 2009Q2

REPORT INFORMATION
  Report Type: 
  Country: None (occurrence: None)
  Receive Date: 20090428
  Receipt Date: 20090415
  Transmission Date: 20091009
  Serious: Yes (Death)
  Sender: FDA-Public Use
  Company Number: 1000005053

PATIENT
  Age: 88 Year
  Sex: Female
  Weight: 67 kg

DRUGS (11)
  1. CITALOPRAM HYDROBROMIDE [Suspect]
     Indication: DEPRESSION
     Dosage: SEE IMAGE
     Route: 048
     Dates: start: 20050722, end: 20050728
  2. CITALOPRAM HYDROBROMIDE [Suspect]
     Indication: DEPRESSION
     Dosage: SEE IMAGE
     Route: 048
     Dates: start: 20050729, end: 20070201
  3. CITALOPRAM HYDROBROMIDE [Suspect]
     Indication: DEPRESSION
     Dosage: SEE IMAGE
     Route: 048
     Dates: start: 20070201, end: 20080417
  4. CITALOPRAM HYDROBROMIDE [Suspect]
     Indication: DEPRESSION
     Dosage: SEE IMAGE
     Route: 048
     Dates: start: 20080418, end: 20081211
  5. TEMAZEPAM [Concomitant]
  6. ASPIRIN [Concomitant]
  7. RAMIPRIL [Concomitant]
  8. TOLTERODINE [Concomitant]
  9. TRIMETHOPRIM [Concomitant]
  10. LATANOPROST (EYE DROPS) [Concomitant]
  11. FOLIC ACID [Concomitant]

REACTIONS (12)
  - ARTERIOSCLEROSIS [None]
  - CARDIAC HYPERTROPHY [None]
  - CARDIOMEGALY [None]
  - CEREBRAL ATROPHY [None]
  - CHOLELITHIASIS [None]
  - CORONARY ARTERY STENOSIS [None]
  - DRUG TOXICITY [None]
  - HEPATIC STEATOSIS [None]
  - HYPERTENSIVE HEART DISEASE [None]
  - NEPHROSCLEROSIS [None]
  - PULMONARY CONGESTION [None]
  - SCAR [None]
